FAERS Safety Report 9448894 (Version 2)
Quarter: 2013Q3

REPORT INFORMATION
  Report Type: Spontaneous
  Country: US (occurrence: US)
  Receive Date: 20130808
  Receipt Date: 20130817
  Transmission Date: 20140515
  Serious: Yes (Hospitalization, Other)
  Sender: FDA-Public Use
  Company Number: US-UCBSA-094835

PATIENT
  Age: 60 Year
  Sex: Male

DRUGS (5)
  1. KEPPRA [Suspect]
     Indication: CONVULSION
     Dosage: DRUG STRENGTH 750 MG, TWO TABLETS IN THE MORNING AND TWO IN THE EVENING
  2. KEPPRA [Suspect]
     Indication: CONVULSION
     Dosage: UNKNOWN DOSE
     Dates: start: 201207
  3. DILANTIN [Concomitant]
     Indication: CONVULSION
     Dates: start: 201301
  4. ATIVAN [Concomitant]
     Indication: ANGER
     Dosage: UNKNOWN DOSE
  5. ZOLOFT [Concomitant]
     Indication: ANGER
     Dosage: UNKNOWN DOSE

REACTIONS (17)
  - Convulsion [Unknown]
  - Postictal paralysis [Unknown]
  - Nervous system disorder [Unknown]
  - Complex partial seizures [Unknown]
  - Grand mal convulsion [Unknown]
  - Intestinal resection [Unknown]
  - Amnesia [Unknown]
  - Headache [Unknown]
  - Drug ineffective [Unknown]
  - Feeling abnormal [Unknown]
  - Parosmia [Unknown]
  - Agitation [Unknown]
  - Anger [Unknown]
  - Muscle tightness [Unknown]
  - Aura [Unknown]
  - Road traffic accident [Unknown]
  - Appendicectomy [Unknown]
